FAERS Safety Report 24098055 (Version 5)
Quarter: 2024Q4

REPORT INFORMATION
  Report Type: Spontaneous
  Country: AU (occurrence: AU)
  Receive Date: 20240716
  Receipt Date: 20241018
  Transmission Date: 20250115
  Serious: Yes (Other)
  Sender: ROCHE
  Company Number: AU-ROCHE-10000024321

PATIENT
  Age: 72 Year
  Sex: Female

DRUGS (4)
  1. RITUXIMAB [Suspect]
     Active Substance: RITUXIMAB
     Indication: Neuromyelitis optica spectrum disorder
     Dosage: LAST DATE OF DOSE ON -MAR-2023
     Route: 065
     Dates: end: 202303
  2. TOCILIZUMAB [Suspect]
     Active Substance: TOCILIZUMAB
     Indication: Neuromyelitis optica spectrum disorder
     Route: 042
     Dates: start: 20230627
  3. METHYLPREDNISOLONE [Concomitant]
     Active Substance: METHYLPREDNISOLONE
     Route: 042
  4. ALBUMIN HUMAN [Concomitant]
     Active Substance: ALBUMIN HUMAN

REACTIONS (3)
  - Optic neuritis [Recovered/Resolved]
  - Off label use [Unknown]
  - Off label use [Unknown]
